FAERS Safety Report 6130659-2 (Version None)
Quarter: 2009Q1

REPORT INFORMATION
  Report Type: 
  Country: None (occurrence: None)
  Receive Date: 20090325
  Receipt Date: 20090320
  Transmission Date: 20090719
  Serious: Yes (Other)
  Sender: FDA-Public Use
  Company Number: US-ASTRAZENECA-2008UW25900

PATIENT
  Age: 513 Month
  Sex: Male
  Weight: 123.8 kg

DRUGS (7)
  1. SEROQUEL [Suspect]
     Indication: DEPRESSION
     Dosage: 25 TO 300 MG
     Route: 048
     Dates: start: 20040105
  2. SEROQUEL [Suspect]
     Indication: ANXIETY
     Dosage: 25 TO 300 MG
     Route: 048
     Dates: start: 20040105
  3. SEROQUEL [Suspect]
     Indication: BIPOLAR DISORDER
     Dosage: 25 TO 300 MG
     Route: 048
     Dates: start: 20040105
  4. ZYPREXA [Concomitant]
     Dates: start: 20021008, end: 20040213
  5. EFFEXOR [Concomitant]
     Dates: start: 20021024
  6. REMERON [Concomitant]
     Dates: start: 20081201
  7. REMERON [Concomitant]
     Dates: start: 20030101, end: 20030101

REACTIONS (8)
  - CARDIAC DISORDER [None]
  - CHEST PAIN [None]
  - COUGH [None]
  - DEEP VEIN THROMBOSIS [None]
  - DIABETES MELLITUS [None]
  - DYSPNOEA [None]
  - OBESITY [None]
  - PULMONARY EMBOLISM [None]
